FAERS Safety Report 6936579-5 (Version None)
Quarter: 2010Q3

REPORT INFORMATION
  Report Type: 
  Country: None (occurrence: None)
  Receive Date: 20100823
  Receipt Date: 20100811
  Transmission Date: 20110219
  Serious: Yes (Other)
  Sender: FDA-Public Use
  Company Number: FR-JNJFOC-20100804343

PATIENT
  Age: 27 Year
  Sex: Female

DRUGS (13)
  1. INFLIXIMAB, RECOMBINANT [Suspect]
     Indication: RHEUMATOID ARTHRITIS
     Route: 042
  2. INFLIXIMAB, RECOMBINANT [Suspect]
     Route: 042
  3. INFLIXIMAB, RECOMBINANT [Suspect]
     Route: 042
  4. INFLIXIMAB, RECOMBINANT [Suspect]
     Route: 042
  5. ARAVA [Concomitant]
  6. RIVOTRIL [Concomitant]
  7. CELEBREX [Concomitant]
  8. PAROXETINE HCL [Concomitant]
  9. STRESAM [Concomitant]
  10. PULMICORT [Concomitant]
  11. KLIPAL [Concomitant]
     Dosage: 300 MG/25 MG
  12. METHOTREXATE [Concomitant]
  13. METHOTREXATE [Concomitant]

REACTIONS (7)
  - ASTHENIA [None]
  - ASTHMATIC CRISIS [None]
  - DRUG EXPOSURE DURING PREGNANCY [None]
  - DRUG INEFFECTIVE [None]
  - GASTROINTESTINAL DISORDER [None]
  - INFUSION RELATED REACTION [None]
  - URTICARIA [None]
